FAERS Safety Report 25172689 (Version 1)
Quarter: 2025Q2

REPORT INFORMATION
  Report Type: Report from Study
  Country: CA (occurrence: CA)
  Receive Date: 20250408
  Receipt Date: 20250408
  Transmission Date: 20250716
  Serious: Yes (Other)
  Sender: TAKEDA
  Company Number: CA-TAKEDA-2024TUS090807

PATIENT
  Age: 52 Year
  Sex: Male

DRUGS (18)
  1. VEDOLIZUMAB [Suspect]
     Active Substance: VEDOLIZUMAB
     Indication: Crohn^s disease
     Dosage: 300 MILLIGRAM, Q4WEEKS
     Dates: start: 20160818
  2. VEDOLIZUMAB [Suspect]
     Active Substance: VEDOLIZUMAB
     Dosage: 300 MILLIGRAM, Q4WEEKS
  3. VEDOLIZUMAB [Suspect]
     Active Substance: VEDOLIZUMAB
     Dosage: 300 MILLIGRAM, Q4WEEKS
  4. GRAVOL [Concomitant]
     Active Substance: DIMENHYDRINATE
  5. IMODIUM [Concomitant]
     Active Substance: LOPERAMIDE HYDROCHLORIDE
  6. ZOLOFT [Concomitant]
     Active Substance: SERTRALINE HYDROCHLORIDE
  7. LORAZEPAM [Concomitant]
     Active Substance: LORAZEPAM
  8. HYDROCHLOROTHIAZIDE [Concomitant]
     Active Substance: HYDROCHLOROTHIAZIDE
  9. GABAPENTIN [Concomitant]
     Active Substance: GABAPENTIN
  10. TERAZOSIN [Concomitant]
     Active Substance: TERAZOSIN HYDROCHLORIDE
  11. B12 [Concomitant]
  12. PENTASA [Concomitant]
     Active Substance: MESALAMINE
  13. ATIVAN [Concomitant]
     Active Substance: LORAZEPAM
  14. VIAGRA [Concomitant]
     Active Substance: SILDENAFIL CITRATE
  15. HYDROMORPHONE [Concomitant]
     Active Substance: HYDROMORPHONE
  16. TYLENOL [Concomitant]
     Active Substance: ACETAMINOPHEN
  17. TAMSULOSIN [Concomitant]
     Active Substance: TAMSULOSIN
  18. NAPROXEN [Concomitant]
     Active Substance: NAPROXEN

REACTIONS (6)
  - Rectal abscess [Recovered/Resolved]
  - Diarrhoea [Unknown]
  - Abdominal mass [Unknown]
  - Off label use [Unknown]
  - Malaise [Unknown]
  - Abdominal pain [Unknown]

NARRATIVE: CASE EVENT DATE: 20160818
